FAERS Safety Report 10421026 (Version 1)
Quarter: 2014Q3

REPORT INFORMATION
  Report Type: Spontaneous
  Country: US (occurrence: None)
  Receive Date: 20140722
  Receipt Date: 20140722
  Transmission Date: 20150326
  Serious: Yes (Other)
  Sender: FDA-Public Use
  Company Number: 163-10004-14063450

PATIENT
  Age: 62 Year
  Sex: Male

DRUGS (10)
  1. HYDROCODONE ACETAMINOPHEN [Concomitant]
     Active Substance: ACETAMINOPHEN\HYDROCODONE BITARTRATE
  2. CLOBETASOL (SOLUTION) [Concomitant]
  3. DOC-Q-LACE (DOCUSATE SODIUM) (CAPSULES) [Concomitant]
  4. LEVOFLOXACIN (TABLETS) [Concomitant]
  5. CLONZAPEAM (TABLETS) [Concomitant]
  6. AMOXICILLIN/CLAVULANATE (TABLETS) [Concomitant]
  7. ESCITALOPRAM (TABLETS) [Concomitant]
  8. CITALOPRAM (TABLETS) [Concomitant]
  9. OTEZLA [Suspect]
     Active Substance: APREMILAST
     Indication: PSORIATIC ARTHROPATHY
     Route: 048
     Dates: start: 20140523, end: 20140606
  10. HYDROMORPHONE HCL [Concomitant]
     Active Substance: HYDROMORPHONE HYDROCHLORIDE

REACTIONS (1)
  - Diarrhoea [None]

NARRATIVE: CASE EVENT DATE: 2014
